FAERS Safety Report 24683100 (Version 2)
Quarter: 2025Q3

REPORT INFORMATION
  Report Type: Spontaneous
  Country: US (occurrence: US)
  Receive Date: 20241201
  Receipt Date: 20250816
  Transmission Date: 20251021
  Serious: No
  Sender: ALEXION PHARMACEUTICALS
  Company Number: US-AstraZeneca-CH-00756349A

PATIENT
  Sex: Male

DRUGS (1)
  1. BYDUREON BCISE [Suspect]
     Active Substance: EXENATIDE
     Route: 065

REACTIONS (9)
  - Anxiety [Unknown]
  - Constipation [Unknown]
  - Weight decreased [Unknown]
  - Blood pressure measurement [Unknown]
  - Glucose tolerance impaired [Unknown]
  - Blood glucose decreased [Unknown]
  - Life support [Unknown]
  - Dyspnoea [Unknown]
  - Oxygen saturation decreased [Unknown]
